FAERS Safety Report 6395652-3 (Version None)
Quarter: 2009Q4

REPORT INFORMATION
  Report Type: 
  Country: None (occurrence: None)
  Receive Date: 20091009
  Receipt Date: 20091005
  Transmission Date: 20100525
  Serious: Yes (Hospitalization)
  Sender: FDA-Public Use
  Company Number: TR-JNJFOC-20091001884

PATIENT
  Sex: Female
  Weight: 18 kg

DRUGS (1)
  1. RISPERDAL [Suspect]
     Indication: AUTISM
     Dosage: 3 TIMES
     Route: 065

REACTIONS (4)
  - BALANCE DISORDER [None]
  - EYE DISORDER [None]
  - FATIGUE [None]
  - SALIVARY HYPERSECRETION [None]
